FAERS Safety Report 8206444-4 (Version None)
Quarter: 2012Q1

REPORT INFORMATION
  Report Type: 
  Country: None (occurrence: None)
  Receive Date: 20120313
  Receipt Date: 20120309
  Transmission Date: 20120608
  Serious: Yes (Other)
  Sender: FDA-Public Use
  Company Number: PHEH2012US003317

PATIENT
  Sex: Female

DRUGS (7)
  1. DIOVAN [Suspect]
     Indication: BLOOD PRESSURE
     Dosage: 320 MG, QD
     Route: 048
     Dates: start: 20060101
  2. VITAMIN TAB [Concomitant]
     Dosage: UNK UKN, UNK
  3. BENTONOL [Concomitant]
     Dosage: UNK UKN, UNK
  4. LABETALOL HCL [Concomitant]
     Dosage: 200 MG, BID
     Route: 048
  5. MATURE ADULT BONE, TEECH [Concomitant]
     Dosage: UNK UKN, UNK
  6. TYLENOL [Concomitant]
     Dosage: UKN, PRN
     Route: 048
  7. GABAPENTIN [Suspect]
     Dosage: 300 MG, TID
     Route: 048

REACTIONS (2)
  - DEAFNESS [None]
  - CEREBROVASCULAR ACCIDENT [None]
